FAERS Safety Report 5081592-9 (Version None)
Quarter: 2006Q3

REPORT INFORMATION
  Report Type: 
  Country: None (occurrence: None)
  Receive Date: 20060811
  Receipt Date: 20060803
  Transmission Date: 20061208
  Serious: Yes (Other)
  Sender: FDA-Public Use
  Company Number: 2006095379

PATIENT
  Age: 50 Year
  Sex: Male

DRUGS (3)
  1. GEODON [Suspect]
     Indication: ANXIETY
     Dosage: 20 MG (20 MG, 1 IN 1 D), ORAL
     Route: 048
  2. GEODON [Suspect]
     Indication: DEPRESSION
     Dosage: 20 MG (20 MG, 1 IN 1 D), ORAL
     Route: 048
  3. FLUOXETINE [Concomitant]

REACTIONS (3)
  - FATIGUE [None]
  - HALLUCINATION [None]
  - MYALGIA [None]
